FAERS Safety Report 9503632 (Version 1)
Quarter: 2013Q3

REPORT INFORMATION
  Report Type: Spontaneous
  Country: US (occurrence: None)
  Receive Date: 20130905
  Receipt Date: 20130905
  Transmission Date: 20140515
  Serious: Yes (Hospitalization, Disabling)
  Sender: FDA-Public Use
  Company Number: None

PATIENT
  Sex: Female
  Weight: 58.97 kg

DRUGS (1)
  1. MIRENA [Suspect]
     Dates: start: 20081015, end: 20100421

REACTIONS (6)
  - Menstruation irregular [None]
  - Menorrhagia [None]
  - Dysmenorrhoea [None]
  - Infertility female [None]
  - Endometriosis [None]
  - Ovarian cyst [None]
